FAERS Safety Report 13163736 (Version 6)
Quarter: 2017Q2

REPORT INFORMATION
  Report Type: Spontaneous
  Country: US (occurrence: US)
  Receive Date: 20170130
  Receipt Date: 20170608
  Transmission Date: 20170830
  Serious: Yes (Other)
  Sender: FDA-Public Use
  Company Number: PHEH2017US003061

PATIENT
  Sex: Female
  Weight: 49.89 kg

DRUGS (1)
  1. ZOFRAN [Suspect]
     Active Substance: ONDANSETRON HYDROCHLORIDE
     Indication: VOMITING IN PREGNANCY
     Dosage: 8 MG
     Route: 048
     Dates: start: 20010411, end: 20010421

REACTIONS (8)
  - Product use in unapproved indication [Unknown]
  - Headache [Unknown]
  - Pulmonary oedema [Unknown]
  - Injury [Unknown]
  - Dyspnoea [Unknown]
  - Maternal exposure during pregnancy [Unknown]
  - Rash pruritic [Unknown]
  - Pyrexia [Unknown]
